FAERS Safety Report 4641186-3 (Version None)
Quarter: 2005Q2

REPORT INFORMATION
  Report Type: 
  Country: None (occurrence: None)
  Receive Date: 20050421
  Receipt Date: 20050325
  Transmission Date: 20051028
  Serious: Yes (Hospitalization)
  Sender: FDA-Public Use
  Company Number: 200511073FR

PATIENT
  Age: 72 Year
  Sex: Female

DRUGS (5)
  1. KETEK [Suspect]
     Indication: BRONCHITIS
     Route: 048
     Dates: start: 20050214, end: 20050219
  2. SINTROM [Suspect]
     Route: 048
     Dates: end: 20050225
  3. LASILIX [Concomitant]
  4. DETENSIEL [Concomitant]
  5. COVERSYL [Concomitant]

REACTIONS (2)
  - ABDOMINAL HAEMATOMA [None]
  - ANAEMIA [None]
